FAERS Safety Report 24705075 (Version 2)
Quarter: 2024Q4

REPORT INFORMATION
  Report Type: Spontaneous
  Country: US (occurrence: US)
  Receive Date: 20241206
  Receipt Date: 20241213
  Transmission Date: 20250115
  Serious: Yes (Other)
  Sender: HIKMA
  Company Number: US-MLMSERVICE-20241118-PI263131-00232-1

PATIENT
  Sex: Female

DRUGS (5)
  1. MYCOPHENOLIC ACID [Suspect]
     Active Substance: MYCOPHENOLIC ACID
     Indication: Product used for unknown indication
     Dosage: 1500 MILLIGRAM, BID, TITRATED UP TO 1500 MG TWICE A DAY
     Route: 065
  2. DEXAMETHASONE [Concomitant]
     Active Substance: DEXAMETHASONE
     Indication: Chorioretinitis
     Dosage: 0.7 MILLIGRAM
     Route: 065
  3. FLUOCINOLONE ACETONIDE [Concomitant]
     Active Substance: FLUOCINOLONE ACETONIDE
     Indication: Chorioretinitis
     Dosage: 0.59 MILLIGRAM
     Route: 065
  4. PREDNISONE [Concomitant]
     Active Substance: PREDNISONE
     Indication: Chorioretinitis
     Dosage: 60 MILLIGRAM, QD, ON A 10 MG/WEEK TAPER
     Route: 065
  5. TRIAMCINOLONE ACETONIDE [Concomitant]
     Active Substance: TRIAMCINOLONE ACETONIDE
     Indication: Chorioretinitis
     Route: 065

REACTIONS (3)
  - Lymphoproliferative disorder [Recovering/Resolving]
  - B-cell lymphoma [Recovering/Resolving]
  - Ocular lymphoma [Recovering/Resolving]
